FAERS Safety Report 7240386-6 (Version None)
Quarter: 2011Q1

REPORT INFORMATION
  Report Type: 
  Country: None (occurrence: None)
  Receive Date: 20110124
  Receipt Date: 20110114
  Transmission Date: 20110831
  Serious: Yes (Other)
  Sender: FDA-Public Use
  Company Number: US-US-EMD SERONO, INC.-7036375

PATIENT
  Sex: Female
  Weight: 53 kg

DRUGS (5)
  1. REBIF [Suspect]
     Indication: MULTIPLE SCLEROSIS
     Route: 058
     Dates: start: 20091201, end: 20100301
  2. ASPIRIN [Concomitant]
     Indication: PREMEDICATION
  3. DAILY WOMEN'S VITAMIN [Concomitant]
     Indication: PROPHYLAXIS
  4. REBIF [Suspect]
     Route: 058
     Dates: start: 20100301, end: 20110112
  5. LEVOTHYROXINE [Concomitant]
     Indication: AUTOIMMUNE THYROIDITIS

REACTIONS (7)
  - ABASIA [None]
  - ANGIOEDEMA [None]
  - CONTUSION [None]
  - OXYGEN SATURATION DECREASED [None]
  - SKIN DISCOLOURATION [None]
  - VITAMIN D DECREASED [None]
  - PULMONARY OEDEMA [None]
